FAERS Safety Report 24845787 (Version 2)
Quarter: 2025Q2

REPORT INFORMATION
  Report Type: Spontaneous
  Country: DE (occurrence: DE)
  Receive Date: 20250115
  Receipt Date: 20250625
  Transmission Date: 20250717
  Serious: Yes (Life-Threatening, Other)
  Sender: ALEXION PHARMACEUTICALS
  Company Number: DE-DCGMA-24204341

PATIENT
  Age: 13 Day
  Weight: 1 kg

DRUGS (1)
  1. BEYFORTUS [Suspect]
     Active Substance: NIRSEVIMAB-ALIP
     Indication: Respiratory syncytial virus immunisation

REACTIONS (4)
  - Meningococcal sepsis [Not Recovered/Not Resolved]
  - Meningitis [Not Recovered/Not Resolved]
  - Escherichia test positive [Not Recovered/Not Resolved]
  - Respiratory failure [Not Recovered/Not Resolved]
